FAERS Safety Report 13139680 (Version 1)
Quarter: 2017Q1

REPORT INFORMATION
  Report Type: Report from Study
  Country: US (occurrence: US)
  Receive Date: 20170123
  Receipt Date: 20170123
  Transmission Date: 20170428
  Serious: Yes (Hospitalization)
  Sender: FDA-Public Use
  Company Number: US-SA-2016SA205037

PATIENT
  Age: 32 Year
  Sex: Female

DRUGS (1)
  1. LEMTRADA [Suspect]
     Active Substance: ALEMTUZUMAB
     Indication: MULTIPLE SCLEROSIS
     Route: 041
     Dates: start: 20161101, end: 20161105

REACTIONS (11)
  - Chest discomfort [Not Recovered/Not Resolved]
  - Rash [Recovered/Resolved]
  - Throat tightness [Recovered/Resolved]
  - Nuclear magnetic resonance imaging abnormal [Not Recovered/Not Resolved]
  - Throat irritation [Recovered/Resolved]
  - Pain [Not Recovered/Not Resolved]
  - Blindness [Not Recovered/Not Resolved]
  - Confusional state [Unknown]
  - Fatigue [Not Recovered/Not Resolved]
  - Neck pain [Not Recovered/Not Resolved]
  - Anxiety [Not Recovered/Not Resolved]

NARRATIVE: CASE EVENT DATE: 2016
